FAERS Safety Report 8830127 (Version 1)
Quarter: 2012Q4

REPORT INFORMATION
  Report Type: Spontaneous
  Country: US (occurrence: None)
  Receive Date: 20121005
  Receipt Date: 20121005
  Transmission Date: 20130627
  Serious: Yes (Hospitalization)
  Sender: FDA-Public Use
  Company Number: None

PATIENT
  Age: 2 None
  Sex: Male
  Weight: 2.7 kg

DRUGS (1)
  1. LATUDA [Suspect]
     Indication: PSYCHOSIS
     Dosage: from 9/10 to 9/20
     Route: 048

REACTIONS (5)
  - Infantile apnoeic attack [None]
  - Muscle rigidity [None]
  - Tremor [None]
  - Extrapyramidal disorder [None]
  - Maternal drugs affecting foetus [None]
